FAERS Safety Report 21979660 (Version 1)
Quarter: 2023Q1

REPORT INFORMATION
  Report Type: Spontaneous
  Country: US (occurrence: US)
  Receive Date: 20230210
  Receipt Date: 20230210
  Transmission Date: 20230418
  Serious: No
  Sender: FDA-Public Use
  Company Number: US-MAYNE PHARMA-2022MYN000371

PATIENT
  Sex: Female

DRUGS (3)
  1. DIAZEPAM [Suspect]
     Active Substance: DIAZEPAM
     Indication: Fibromyalgia
     Dosage: 10 MG, QD
     Route: 048
  2. DIAZEPAM [Suspect]
     Active Substance: DIAZEPAM
     Dosage: 5 MG
  3. DIAZEPAM [Suspect]
     Active Substance: DIAZEPAM
     Dosage: 2.5 MG
     Route: 048

REACTIONS (2)
  - Dizziness [Unknown]
  - Gait disturbance [Unknown]
